FAERS Safety Report 26160955 (Version 1)
Quarter: 2025Q4

REPORT INFORMATION
  Report Type: Spontaneous
  Country: US (occurrence: US)
  Receive Date: 20251216
  Receipt Date: 20251216
  Transmission Date: 20260117
  Serious: No
  Sender: ALCON
  Company Number: US-ALCON LABORATORIES-ALC2025US006380

PATIENT
  Age: 82 Year
  Sex: Female

DRUGS (1)
  1. ACOLTREMON [Suspect]
     Active Substance: ACOLTREMON
     Indication: Product used for unknown indication
     Dosage: 1 DROP INTO AFFECTED EYE(S) TWICE A DAY APPROXIMATELY EVERY 12 HOURS APART
     Route: 047
     Dates: start: 20251013, end: 20251014

REACTIONS (2)
  - Eye pain [Unknown]
  - Eye irritation [Unknown]
